FAERS Safety Report 7087333-8 (Version None)
Quarter: 2010Q4

REPORT INFORMATION
  Report Type: 
  Country: None (occurrence: None)
  Receive Date: 20101108
  Receipt Date: 20101027
  Transmission Date: 20110411
  Serious: Yes (Hospitalization)
  Sender: FDA-Public Use
  Company Number: US-BIOGENIDEC-2010BI035733

PATIENT
  Age: 53 Year
  Sex: Female
  Weight: 63 kg

DRUGS (10)
  1. TYSABRI [Suspect]
     Indication: MULTIPLE SCLEROSIS
     Route: 042
     Dates: start: 20100830
  2. NITROFURANTOIN [Concomitant]
     Indication: INTERSTITIAL LUNG DISEASE
  3. DIFLUCAN [Concomitant]
  4. TESSALON [Concomitant]
  5. PREDNISONE TAPER [Concomitant]
  6. DILANTIN [Concomitant]
  7. ACETAMINOPHEN [Concomitant]
  8. CALCIUM [Concomitant]
  9. VITAMIN D [Concomitant]
  10. ESTRACE [Concomitant]

REACTIONS (2)
  - INTERSTITIAL LUNG DISEASE [None]
  - PNEUMONIA [None]
